FAERS Safety Report 6575590-3 (Version None)
Quarter: 2010Q1

REPORT INFORMATION
  Report Type: 
  Country: None (occurrence: None)
  Receive Date: 20100209
  Receipt Date: 20100205
  Transmission Date: 20100710
  Serious: Yes (Hospitalization, Other)
  Sender: FDA-Public Use
  Company Number: A0843259A

PATIENT
  Age: 3 Year
  Sex: Female

DRUGS (2)
  1. ZOFRAN [Suspect]
     Indication: DRUG USE FOR UNKNOWN INDICATION
     Dosage: 40MG SINGLE DOSE
     Route: 048
     Dates: start: 20100204
  2. NO CONCURRENT MEDICATION [Concomitant]

REACTIONS (4)
  - ACCIDENTAL EXPOSURE [None]
  - AGITATION [None]
  - HYPERREFLEXIA [None]
  - OVERDOSE [None]
